FAERS Safety Report 23103108 (Version 1)
Quarter: 2023Q4

REPORT INFORMATION
  Report Type: Spontaneous
  Country: CH (occurrence: CH)
  Receive Date: 20231025
  Receipt Date: 20231025
  Transmission Date: 20240110
  Serious: Yes (Other)
  Sender: FDA-Public Use
  Company Number: CH-MLMSERVICE-20231010-4597033-1

PATIENT
  Age: 61 Year
  Sex: Female

DRUGS (1)
  1. METHOTREXATE [Suspect]
     Active Substance: METHOTREXATE
     Indication: Skin lesion
     Dosage: 7.5-17.5 MG S.C./WEEK

REACTIONS (3)
  - Skin lesion [Recovered/Resolved]
  - Hepatic enzyme increased [Unknown]
  - Product use in unapproved indication [Unknown]
